FAERS Safety Report 4975667-X (Version None)
Quarter: 2006Q2

REPORT INFORMATION
  Report Type: 
  Country: None (occurrence: None)
  Receive Date: 20060411
  Receipt Date: 20060329
  Transmission Date: 20061013
  Serious: Yes (Hospitalization)
  Sender: FDA-Public Use
  Company Number: 2006044029

PATIENT
  Age: 57 Year
  Sex: Female
  Weight: 121.1104 kg

DRUGS (3)
  1. BENADRYL [Suspect]
     Indication: SLEEP DISORDER
     Dosage: AT NIGHT AS NEEDED FOR SEVERAL YEARS, ORAL
     Route: 048
  2. MOTRIN [Suspect]
     Indication: ARTHRALGIA
     Dosage: 400MG, 1 IN 1 TOTAL, ORAL
     Route: 048
  3. ACETAMINOPHEN [Suspect]
     Indication: ARTHRALGIA
     Dosage: 1000MG EVERY 4-6 HOURS AS NEEDED, ORAL
     Route: 048
     Dates: end: 20060313

REACTIONS (4)
  - ABDOMINAL PAIN UPPER [None]
  - DIARRHOEA [None]
  - DRUG HYPERSENSITIVITY [None]
  - URINE OUTPUT INCREASED [None]
